FAERS Safety Report 16421840 (Version 2)
Quarter: 2019Q3

REPORT INFORMATION
  Report Type: Spontaneous
  Country: US (occurrence: US)
  Receive Date: 20190612
  Receipt Date: 20190701
  Transmission Date: 20191004
  Serious: Yes (Death)
  Sender: FDA-Public Use
  Company Number: US-ASTRAZENECA-2019SE84819

PATIENT
  Age: 66 Year
  Sex: Female
  Weight: 61.2 kg

DRUGS (2)
  1. FASENRA [Suspect]
     Active Substance: BENRALIZUMAB
     Indication: ASTHMA
     Dosage: EVERY 4 WEEKS FOR THE FIRST THREE DOSES, AND THEN EVERY OTHER MONTH, MEANING EVERY 8 WEEKS THEREA...
     Route: 058
  2. FASENRA [Suspect]
     Active Substance: BENRALIZUMAB
     Indication: ILL-DEFINED DISORDER
     Dosage: EVERY 4 WEEKS FOR THE FIRST THREE DOSES, AND THEN EVERY OTHER MONTH, MEANING EVERY 8 WEEKS THEREA...
     Route: 058

REACTIONS (1)
  - Respiratory failure [Fatal]

NARRATIVE: CASE EVENT DATE: 20190519
